FAERS Safety Report 20766346 (Version 3)
Quarter: 2022Q2

REPORT INFORMATION
  Report Type: Spontaneous
  Country: CZ (occurrence: CZ)
  Receive Date: 20220428
  Receipt Date: 20220511
  Transmission Date: 20220721
  Serious: Yes (Death, Hospitalization, Other)
  Sender: FDA-Public Use
  Company Number: CZ-GILEAD-2022-0579165

PATIENT
  Age: 69 Year
  Sex: Female

DRUGS (14)
  1. VEKLURY [Suspect]
     Active Substance: REMDESIVIR
     Indication: COVID-19 pneumonia
     Dosage: UNK, SINCE ADMITTANCE, 10 DAYS IN TOTAL
     Route: 065
     Dates: start: 202008
  2. VERAPAMIL [Concomitant]
     Active Substance: VERAPAMIL HYDROCHLORIDE
     Dosage: 240 MG, 1-0-0, SR
  3. LORADUR MITE [Concomitant]
     Dosage: EVERY OTHER DAY 1-0-0
  4. ALLOPURINOL [Concomitant]
     Active Substance: ALLOPURINOL
     Dosage: 100 MG, 0-2-0
  5. OMEPRAZOLE [Concomitant]
     Active Substance: OMEPRAZOLE
     Dosage: 20 MG, 1-0-0
  6. KINITO [Concomitant]
     Dosage: 50 MG, 0-1-1
  7. DESLORATADINE [Concomitant]
     Active Substance: DESLORATADINE
     Dosage: 5 MG, 1-0-0
  8. MONTELUKAST [Concomitant]
     Active Substance: MONTELUKAST SODIUM
     Dosage: 10 MG, 0-0-1
  9. SPIRIVA [TIOTROPIUM BROMIDE] [Concomitant]
     Dosage: 2-0-0
     Route: 055
  10. COMBAIR [IPRATROPIUM BROMIDE;SALBUTAMOL] [Concomitant]
     Dosage: 2-0-2
     Route: 055
  11. VENTOLIN [Concomitant]
     Active Substance: ALBUTEROL SULFATE
     Dosage: 1-2 TO INHALE ^DLP^
     Route: 055
  12. CHOLECALCIFEROL [Concomitant]
     Active Substance: CHOLECALCIFEROL
     Dosage: 10 GTT DROPS, Q1WK
  13. PREDNISONE [Concomitant]
     Active Substance: PREDNISONE
     Dosage: 2 MG, 1-0-0
  14. IMASUP [Concomitant]
     Dosage: 50 MG, 0-1-0

REACTIONS (1)
  - Death [Fatal]
